FAERS Safety Report 14172236 (Version 1)
Quarter: 2017Q4

REPORT INFORMATION
  Report Type: Report from Study
  Country: None (occurrence: US)
  Receive Date: 20171109
  Receipt Date: 20171109
  Transmission Date: 20180321
  Serious: Yes (Other)
  Sender: FDA-Public Use
  Company Number: US-ABBVIE-17K-163-2067310-00

PATIENT
  Age: 55 Year
  Sex: Male

DRUGS (1)
  1. HUMIRA [Suspect]
     Active Substance: ADALIMUMAB
     Indication: PSORIASIS
     Route: 058
     Dates: start: 20170325, end: 201707

REACTIONS (6)
  - Post procedural swelling [Recovered/Resolved]
  - Arthralgia [Recovering/Resolving]
  - Feeling hot [Recovered/Resolved]
  - Peripheral nerve decompression [Recovered/Resolved]
  - Post procedural infection [Recovered/Resolved]
  - Hypoaesthesia [Recovering/Resolving]

NARRATIVE: CASE EVENT DATE: 201705
